FAERS Safety Report 13573774 (Version 5)
Quarter: 2017Q3

REPORT INFORMATION
  Report Type: Spontaneous
  Country: JP (occurrence: JP)
  Receive Date: 20170523
  Receipt Date: 20170728
  Transmission Date: 20171127
  Serious: Yes (Death, Life-Threatening, Other)
  Sender: FDA-Public Use
  Company Number: JP-JNJFOC-20170521121

PATIENT
  Age: 36 Year
  Sex: Female
  Weight: 55 kg

DRUGS (15)
  1. HUMIRA [Concomitant]
     Active Substance: ADALIMUMAB
     Indication: CROHN^S DISEASE
     Route: 058
     Dates: start: 20170111, end: 20170111
  2. HUMIRA [Concomitant]
     Active Substance: ADALIMUMAB
     Indication: CROHN^S DISEASE
     Route: 058
     Dates: start: 20170125, end: 20170125
  3. ONEDURO [Concomitant]
     Active Substance: FENTANYL
     Route: 061
     Dates: end: 20170503
  4. REMICADE [Suspect]
     Active Substance: INFLIXIMAB
     Indication: CROHN^S DISEASE
     Route: 042
     Dates: start: 20160420
  5. HUMIRA [Concomitant]
     Active Substance: ADALIMUMAB
     Indication: CROHN^S DISEASE
     Route: 058
     Dates: start: 20161214, end: 20161214
  6. REMICADE [Suspect]
     Active Substance: INFLIXIMAB
     Indication: CROHN^S DISEASE
     Route: 042
     Dates: start: 20170329, end: 20170329
  7. DOGMATYL [Concomitant]
     Active Substance: SULPIRIDE
     Route: 048
     Dates: start: 20170412, end: 20170503
  8. REMICADE [Suspect]
     Active Substance: INFLIXIMAB
     Indication: CROHN^S DISEASE
     Route: 042
     Dates: start: 20170412, end: 20170412
  9. PENTASA [Concomitant]
     Active Substance: MESALAMINE
     Route: 048
     Dates: end: 20170503
  10. PREDONINE [Concomitant]
     Active Substance: PREDNISOLONE
     Route: 065
  11. ZYPREXA [Concomitant]
     Active Substance: OLANZAPINE
     Route: 048
     Dates: start: 20170412, end: 20170503
  12. MORPHINE [Concomitant]
     Active Substance: MORPHINE
     Route: 048
     Dates: end: 20170503
  13. REMICADE [Suspect]
     Active Substance: INFLIXIMAB
     Indication: CROHN^S DISEASE
     Route: 042
     Dates: start: 200604, end: 2016
  14. HUMIRA [Concomitant]
     Active Substance: ADALIMUMAB
     Indication: CROHN^S DISEASE
     Route: 058
     Dates: start: 20161228, end: 20161228
  15. BUDESONIDE. [Concomitant]
     Active Substance: BUDESONIDE
     Indication: CROHN^S DISEASE
     Route: 048
     Dates: start: 20170208, end: 20170321

REACTIONS (11)
  - Malnutrition [Unknown]
  - Dehydration [Unknown]
  - Melaena [Unknown]
  - Diarrhoea [Unknown]
  - Shock haemorrhagic [Recovering/Resolving]
  - Renal disorder [Unknown]
  - Hepatic failure [Fatal]
  - Sepsis [Fatal]
  - Cholecystitis [Unknown]
  - Weight decreased [Unknown]
  - Encephalitis [Fatal]

NARRATIVE: CASE EVENT DATE: 2017
